FAERS Safety Report 9769139 (Version 7)
Quarter: 2015Q1

REPORT INFORMATION
  Report Type: Spontaneous
  Country: US (occurrence: US)
  Receive Date: 20131218
  Receipt Date: 20150324
  Transmission Date: 20150721
  Serious: Yes (Hospitalization, Other)
  Sender: FDA-Public Use
  Company Number: US-009507513-1312USA005247

PATIENT
  Sex: Female
  Weight: 73.47 kg

DRUGS (3)
  1. FOSAMAX [Suspect]
     Active Substance: ALENDRONATE SODIUM
     Indication: OSTEOPOROSIS
     Dosage: 70 MG, QW
     Route: 048
     Dates: start: 20021231, end: 20120508
  2. ALENDRONATE SODIUM. [Suspect]
     Active Substance: ALENDRONATE SODIUM
     Dosage: 70 MG, QW
     Route: 048
     Dates: start: 20080215, end: 20120508
  3. CALCIUM (UNSPECIFIED) [Concomitant]
     Active Substance: CALCIUM
     Indication: OSTEOPOROSIS
     Dosage: 600 MG, BID
     Dates: start: 1999

REACTIONS (30)
  - Rotator cuff repair [Unknown]
  - Cholecystectomy [Unknown]
  - Bladder cancer [Unknown]
  - Osteitis [Unknown]
  - Cataract operation [Unknown]
  - Mood altered [Unknown]
  - Dyspepsia [Unknown]
  - Pain in extremity [Not Recovered/Not Resolved]
  - Intramedullary rod insertion [Unknown]
  - Tenderness [Unknown]
  - Nocturia [Unknown]
  - Headache [Unknown]
  - Intramedullary rod insertion [Unknown]
  - Paranasal sinus discomfort [Unknown]
  - Device extrusion [Unknown]
  - Femur fracture [Unknown]
  - Transient ischaemic attack [Unknown]
  - Appendicectomy [Unknown]
  - Bladder neoplasm [Unknown]
  - Humerus fracture [Unknown]
  - Rheumatoid arthritis [Unknown]
  - Haematuria [Unknown]
  - Hypothyroidism [Unknown]
  - Intestinal resection [Unknown]
  - Femur fracture [Unknown]
  - Cerebrovascular accident [Unknown]
  - Tendon disorder [Unknown]
  - Osteoarthritis [Unknown]
  - Osteoarthritis [Unknown]
  - Oestrogen deficiency [Unknown]

NARRATIVE: CASE EVENT DATE: 20021231
